FAERS Safety Report 22289512 (Version 2)
Quarter: 2023Q2

REPORT INFORMATION
  Report Type: Spontaneous
  Country: PS (occurrence: PS)
  Receive Date: 20230505
  Receipt Date: 20230601
  Transmission Date: 20230721
  Serious: Yes (Other)
  Sender: FDA-Public Use
  Company Number: PS-BAYER-2023A059866

PATIENT
  Age: 32 Year
  Sex: Female

DRUGS (1)
  1. DROSPIRENONE\ETHINYL ESTRADIOL [Suspect]
     Active Substance: DROSPIRENONE\ETHINYL ESTRADIOL
     Indication: Ovarian cyst
     Dosage: 1 DF, QD
     Route: 048

REACTIONS (2)
  - Muscle spasms [Recovered/Resolved]
  - Off label use [None]

NARRATIVE: CASE EVENT DATE: 20230414
